FAERS Safety Report 8844423 (Version 1)
Quarter: 2012Q4

REPORT INFORMATION
  Report Type: 
  Country: AR (occurrence: AR)
  Receive Date: 20121017
  Receipt Date: 20121017
  Transmission Date: 20130627
  Serious: Yes (Other)
  Sender: FDA-Public Use
  Company Number: PHHY2012AR091668

PATIENT
  Sex: Female

DRUGS (1)
  1. DIOVAN [Suspect]
     Indication: HYPERTENSION
     Dosage: 80 mg, one tablet daily
     Dates: start: 200802

REACTIONS (3)
  - Skin cancer [Recovered/Resolved]
  - Breast mass [Recovered/Resolved]
  - Bloody discharge [Recovered/Resolved]
